FAERS Safety Report 9146323 (Version 1)
Quarter: 2013Q1

REPORT INFORMATION
  Report Type: Spontaneous
  Country: US (occurrence: None)
  Receive Date: 20130214
  Receipt Date: 20130214
  Transmission Date: 20140127
  Serious: Yes (Death)
  Sender: FDA-Public Use
  Company Number: 2013020111

PATIENT
  Age: 35 Year
  Sex: Female

DRUGS (7)
  1. MEPROBAMATE (MEPROBAMATE) [Suspect]
     Indication: COMPLETED SUICIDE
     Route: 048
  2. HYDROCODONE W/ACETAMINOPHEN (HYDROCODONE, ACETAMINOPHEN) [Suspect]
     Indication: COMPLETED SUICIDE
  3. HYDOXYZINE (HYDROXYZINE) [Suspect]
     Indication: COMPLETED SUICIDE
  4. SKELETAL MUSCLE RELAXANT (SKELETAL MUSCLE RELAXANT) [Suspect]
     Indication: COMPLETED SUICIDE
     Route: 048
  5. PROMETHAZINE (PROMETHAZINE) [Suspect]
  6. VENLAFAXINE [Suspect]
     Indication: COMPLETED SUICIDE
  7. TOPIRAMATE (TOPIRAMATE) [Suspect]
     Indication: COMPLETED SUICIDE
     Route: 048

REACTIONS (3)
  - Completed suicide [None]
  - Cardiac arrest [None]
  - Respiratory arrest [None]
